APPROVED DRUG PRODUCT: SYMBICORT AEROSPHERE
Active Ingredient: BUDESONIDE; FORMOTEROL FUMARATE
Strength: 0.16MG/INH;0.0048MG/INH
Dosage Form/Route: AEROSOL, METERED;INHALATION
Application: N216579 | Product #001
Applicant: ASTRAZENECA PHARMACEUTICALS LP
Approved: Apr 28, 2023 | RLD: Yes | RS: Yes | Type: RX

PATENTS:
Patent 10716753 | Expires: May 28, 2030
Patent 9415009 | Expires: May 28, 2030